FAERS Safety Report 6287415-4 (Version None)
Quarter: 2009Q3

REPORT INFORMATION
  Report Type: 
  Country: None (occurrence: None)
  Receive Date: 20090728
  Receipt Date: 20090722
  Transmission Date: 20100115
  Serious: Yes (Other)
  Sender: FDA-Public Use
  Company Number: DE-GILEAD-2009-0023252

PATIENT
  Age: 46 Year
  Sex: Male

DRUGS (3)
  1. HEPSERA [Suspect]
     Indication: HEPATITIS B VIRUS TEST
     Dates: start: 20080101
  2. VIREAD [Suspect]
     Indication: HEPATITIS B VIRUS TEST
     Dates: start: 20080601
  3. ZEFFIX [Concomitant]
     Dates: start: 20051201

REACTIONS (3)
  - BLOOD CREATINE PHOSPHOKINASE INCREASED [None]
  - ELECTROCARDIOGRAM T WAVE ABNORMAL [None]
  - VIRAL LOAD INCREASED [None]
